FAERS Safety Report 19001397 (Version 1)
Quarter: 2021Q1

REPORT INFORMATION
  Report Type: Other
  Country: NO (occurrence: NO)
  Receive Date: 20210311
  Receipt Date: 20210311
  Transmission Date: 20210420
  Serious: Yes (Hospitalization, Other)
  Sender: FDA-Public Use
  Company Number: NO-CELLTRION INC.-2021NO002930

PATIENT

DRUGS (3)
  1. REMSIMA [Suspect]
     Active Substance: INFLIXIMAB
     Indication: SAPHO SYNDROME
     Dosage: 4 DOSES
     Route: 065
     Dates: start: 20190215, end: 20190524
  2. REMICADE [Suspect]
     Active Substance: INFLIXIMAB
     Indication: SAPHO SYNDROME
     Dosage: 4 DOSES
     Route: 042
     Dates: start: 20190215, end: 20190524
  3. LEVAXIN [Concomitant]
     Active Substance: LEVOTHYROXINE SODIUM
     Indication: HYPOTHYROIDISM
     Route: 065

REACTIONS (3)
  - Autoimmune hepatitis [Unknown]
  - Off label use [Unknown]
  - Product use in unapproved indication [Unknown]

NARRATIVE: CASE EVENT DATE: 20190215
